FAERS Safety Report 12297113 (Version 1)
Quarter: 2016Q2

REPORT INFORMATION
  Report Type: Spontaneous
  Country: IT (occurrence: IT)
  Receive Date: 20160422
  Receipt Date: 20160422
  Transmission Date: 20160815
  Serious: Yes (Death)
  Sender: FDA-Public Use
  Company Number: IT-ROXANE LABORATORIES, INC.-2016-RO-00719RO

PATIENT
  Age: 42 Year
  Sex: Male

DRUGS (3)
  1. DOLOPHINE [Suspect]
     Active Substance: METHADONE HYDROCHLORIDE
     Indication: DRUG WITHDRAWAL MAINTENANCE THERAPY
     Dosage: 40 MG
     Route: 065
  2. PROMAZINE [Concomitant]
     Active Substance: PROMAZINE
     Route: 065
  3. ETHANOL [Concomitant]
     Active Substance: ALCOHOL
     Route: 065

REACTIONS (1)
  - Toxicity to various agents [Fatal]
